FAERS Safety Report 7045553-2 (Version None)
Quarter: 2010Q4

REPORT INFORMATION
  Report Type: 
  Country: None (occurrence: None)
  Receive Date: 20101014
  Receipt Date: 20101007
  Transmission Date: 20110411
  Serious: Yes (Hospitalization)
  Sender: FDA-Public Use
  Company Number: DE-ABBOTT-10P-062-0666814-00

PATIENT
  Sex: Male
  Weight: 73 kg

DRUGS (4)
  1. HUMIRA [Suspect]
     Indication: CROHN'S DISEASE
     Dosage: 160MG ON LOADING DOSE
     Route: 058
     Dates: start: 20090615, end: 20090615
  2. HUMIRA [Suspect]
     Dosage: 80MG LOADING DOSE
     Route: 058
     Dates: start: 20090629, end: 20090629
  3. HUMIRA [Suspect]
     Route: 058
  4. AZATHIOPRINE [Concomitant]
     Indication: CROHN'S DISEASE
     Dates: start: 20091111

REACTIONS (1)
  - ILEAL STENOSIS [None]
